FAERS Safety Report 8872552 (Version 1)
Quarter: 2012Q4

REPORT INFORMATION
  Report Type: 
  Country: US (occurrence: US)
  Receive Date: 20121029
  Receipt Date: 20121029
  Transmission Date: 20130627
  Serious: No
  Sender: FDA-Public Use
  Company Number: US-B.I. PHARMACEUTICALS,INC./RIDGEFIELD-2012-BP-26271BP

PATIENT
  Sex: Female
  Weight: 63 kg

DRUGS (4)
  1. SPIRIVA [Suspect]
     Indication: CHRONIC OBSTRUCTIVE PULMONARY DISEASE
     Dosage: 18 mcg
     Route: 055
     Dates: start: 2002
  2. LEVOTHYROXINE [Concomitant]
     Indication: HYPOTHYROIDISM
     Route: 048
  3. DAPSONE [Concomitant]
     Indication: SKIN DISORDER
     Route: 048
  4. EYE DROPS [Concomitant]
     Indication: GLAUCOMA
     Route: 061

REACTIONS (2)
  - Musculoskeletal chest pain [Recovered/Resolved]
  - Pneumonia [Not Recovered/Not Resolved]
